FAERS Safety Report 5304133-7 (Version None)
Quarter: 2007Q2

REPORT INFORMATION
  Report Type: 
  Country: None (occurrence: None)
  Receive Date: 20070423
  Receipt Date: 20070411
  Transmission Date: 20071010
  Serious: Yes (Hospitalization)
  Sender: FDA-Public Use
  Company Number: PHHO2007DE06420

PATIENT
  Age: 48 Year
  Sex: Male
  Weight: 88.1 kg

DRUGS (5)
  1. CERTICAN [Suspect]
     Indication: RENAL TRANSPLANT
     Dosage: UNK, NO TREATMENT
  2. SANDIMMUNE [Concomitant]
     Indication: RENAL TRANSPLANT
     Dosage: 300 MG DAILY
     Route: 048
     Dates: start: 20061210, end: 20070317
  3. MYFORTIC [Suspect]
     Indication: RENAL TRANSPLANT
     Dosage: 1440 MG DAILY
     Route: 048
     Dates: start: 20061205, end: 20070319
  4. DECORTIN-H [Suspect]
     Indication: RENAL TRANSPLANT
     Dosage: 10 MG DAILY
     Route: 048
     Dates: start: 20070226, end: 20070319
  5. DECORTIN-H [Suspect]
     Dosage: 20 MG DAILY
     Route: 048
     Dates: start: 20070320

REACTIONS (6)
  - BLOOD CREATININE INCREASED [None]
  - DEHYDRATION [None]
  - LEUKOPENIA [None]
  - ORAL INTAKE REDUCED [None]
  - PAIN [None]
  - WEIGHT DECREASED [None]
